FAERS Safety Report 9148025 (Version 1)
Quarter: 2013Q1

REPORT INFORMATION
  Report Type: Spontaneous
  Country: US (occurrence: US)
  Receive Date: 20130308
  Receipt Date: 20130308
  Transmission Date: 20140127
  Serious: Yes (Other)
  Sender: FDA-Public Use
  Company Number: US-OTSUKA-US-2013-10382

PATIENT
  Age: 60 Year
  Sex: Female

DRUGS (6)
  1. SAMSCA [Suspect]
     Indication: HYPONATRAEMIA
     Dosage: 15 MG MILLIGRAM(S), QD
     Route: 065
     Dates: start: 20130201, end: 20130203
  2. COREG [Concomitant]
     Dosage: 6.25 MG MILLIGRAM(S), BID
  3. KLONOPIN [Concomitant]
  4. SYNTHROID [Concomitant]
  5. LISINOPRIL [Concomitant]
  6. TOPROL XL [Concomitant]

REACTIONS (3)
  - Hepatomegaly [Unknown]
  - Aspartate aminotransferase increased [Recovered/Resolved]
  - Blood bilirubin increased [Unknown]
